FAERS Safety Report 9837892 (Version 1)
Quarter: 2014Q1

REPORT INFORMATION
  Report Type: Spontaneous
  Country: GB (occurrence: GB)
  Receive Date: 20140123
  Receipt Date: 20140123
  Transmission Date: 20141002
  Serious: Yes (Hospitalization)
  Sender: FDA-Public Use
  Company Number: US-ASTRAZENECA-2014SE04663

PATIENT
  Age: 87 Year
  Sex: Male

DRUGS (12)
  1. CANDESARTAN [Suspect]
     Indication: HYPERTENSION
     Route: 048
     Dates: start: 20120301, end: 20120302
  2. FUROSEMIDE [Suspect]
     Indication: HYPERTENSION
     Route: 048
     Dates: start: 20120301, end: 20120302
  3. WARFARIN [Concomitant]
  4. VITAMIN K /00032401/ [Concomitant]
  5. TRIMETHOPRIM [Concomitant]
     Indication: URINARY TRACT INFECTION
  6. TIOTROPIUM BROMIDE [Concomitant]
  7. RANITIDINE [Concomitant]
  8. EPREX [Concomitant]
  9. DIPROBASE /01132701/ [Concomitant]
  10. DIGOXIN [Concomitant]
  11. ALLOPURINOL [Concomitant]
  12. ALFACALCIDOL [Concomitant]

REACTIONS (6)
  - Mobility decreased [Unknown]
  - Dysstasia [Unknown]
  - Confusional state [Unknown]
  - Aggression [Unknown]
  - Renal impairment [Recovering/Resolving]
  - Medication error [Unknown]
